FAERS Safety Report 7814438-3 (Version None)
Quarter: 2011Q4

REPORT INFORMATION
  Report Type: 
  Country: None (occurrence: None)
  Receive Date: 20111011
  Receipt Date: 20111004
  Transmission Date: 20120403
  Serious: Yes (Hospitalization, Disabling, Other)
  Sender: FDA-Public Use
  Company Number: 2011SP014621

PATIENT
  Age: 38 Year
  Sex: Female
  Weight: 86.1834 kg

DRUGS (9)
  1. NUVARING [Suspect]
     Indication: CONTRACEPTION
     Dates: start: 20080101, end: 20090426
  2. NUVARING [Suspect]
     Indication: MIGRAINE
     Dates: start: 20080101, end: 20090426
  3. XANAX [Concomitant]
  4. DIAMOX SRC [Concomitant]
  5. AXERT [Concomitant]
  6. KEPPRA [Concomitant]
  7. SKELAXIN [Concomitant]
  8. VICODIN [Concomitant]
  9. ZANAFLEX [Concomitant]

REACTIONS (14)
  - PNEUMONIA [None]
  - DRUG HYPERSENSITIVITY [None]
  - PULMONARY EMBOLISM [None]
  - ACTIVATED PARTIAL THROMBOPLASTIN TIME PROLONGED [None]
  - ASTHMA [None]
  - HYPOTENSION [None]
  - SUPERIOR SAGITTAL SINUS THROMBOSIS [None]
  - HYPERCOAGULATION [None]
  - URINARY TRACT INFECTION [None]
  - DEEP VEIN THROMBOSIS [None]
  - POLYCYSTIC OVARIES [None]
  - RASH [None]
  - BRADYCARDIA [None]
  - PROTHROMBIN TIME PROLONGED [None]
